FAERS Safety Report 6154249-0 (Version None)
Quarter: 2009Q2

REPORT INFORMATION
  Report Type: 
  Country: None (occurrence: None)
  Receive Date: 20090410
  Receipt Date: 20090213
  Transmission Date: 20091009
  Serious: Yes (Hospitalization)
  Sender: FDA-Public Use
  Company Number: 234580

PATIENT
  Age: 67 Year
  Sex: Male

DRUGS (4)
  1. LEUCOVORIN CALCIUM [Suspect]
     Indication: COLORECTAL CANCER METASTATIC
     Dosage: 515 MG, ONCE EVERY 2 WEEKS, INTRAVENOUS
     Route: 042
     Dates: start: 20080724
  2. IRINOTECAN HCL [Suspect]
     Indication: COLORECTAL CANCER METASTATIC
     Dosage: 232 MG, ONCE EVERY 2 WEEKS, INTRAVENOUS
     Route: 042
     Dates: start: 20080724
  3. FLUOROURACIL [Suspect]
     Indication: COLORECTAL CANCER METASTATIC
     Dosage: 3606 MG, EVERY 2 WEEKS, INTRAVENOUS
     Route: 042
     Dates: start: 20080724
  4. (SUNITTNIB) [Suspect]
     Indication: COLORECTAL CANCER METASTATIC
     Dosage: 37.5 MG, DAILY, INTRAVENOUS
     Route: 042
     Dates: start: 20080724

REACTIONS (8)
  - BLOOD DISORDER [None]
  - DIZZINESS [None]
  - ESCHERICHIA INFECTION [None]
  - GASTRITIS [None]
  - HAEMOGLOBIN DECREASED [None]
  - PLATELET COUNT DECREASED [None]
  - RED BLOOD CELL COUNT DECREASED [None]
  - VOMITING [None]
